FAERS Safety Report 8600004-9 (Version None)
Quarter: 2012Q3

REPORT INFORMATION
  Report Type: 
  Country: None (occurrence: None)
  Receive Date: 20120816
  Receipt Date: 20120814
  Transmission Date: 20120928
  Serious: Yes (Other)
  Sender: FDA-Public Use
  Company Number: CN-ROCHE-1043372

PATIENT
  Age: 44 Year
  Sex: Female
  Weight: 105 kg

DRUGS (7)
  1. CYCLOPHOSPHAMIDE [Concomitant]
     Indication: DIFFUSE LARGE B-CELL LYMPHOMA
     Route: 041
     Dates: start: 20110615, end: 20111116
  2. DOXORUBICIN HYDROCHLORIDE [Concomitant]
     Indication: DIFFUSE LARGE B-CELL LYMPHOMA
     Route: 041
     Dates: start: 20110615, end: 20111116
  3. MABTHERA [Suspect]
     Indication: DIFFUSE LARGE B-CELL LYMPHOMA
     Route: 041
     Dates: start: 20110615, end: 20111116
  4. CYCLOPHOSPHAMIDE [Concomitant]
  5. VINCRISTINE [Concomitant]
     Indication: DIFFUSE LARGE B-CELL LYMPHOMA
     Route: 041
     Dates: start: 20110615, end: 20111116
  6. MABTHERA [Suspect]
     Route: 041
     Dates: start: 20120730
  7. PREDNISONE TAB [Concomitant]
     Indication: DIFFUSE LARGE B-CELL LYMPHOMA
     Route: 048
     Dates: start: 20110615, end: 20111116

REACTIONS (5)
  - BACK PAIN [None]
  - LUNG INFILTRATION [None]
  - LUNG INFECTION [None]
  - SEPSIS [None]
  - CHEST PAIN [None]
